FAERS Safety Report 21408798 (Version 2)
Quarter: 2022Q4

REPORT INFORMATION
  Report Type: Spontaneous
  Country: US (occurrence: US)
  Receive Date: 20221004
  Receipt Date: 20221005
  Transmission Date: 20230113
  Serious: No
  Sender: FDA-Public Use
  Company Number: US-PFIZER INC-202201201325

PATIENT
  Sex: Female

DRUGS (1)
  1. PAXLOVID [Suspect]
     Active Substance: NIRMATRELVIR\RITONAVIR
     Indication: COVID-19 treatment
     Dosage: [PF-07321332 300 MG]/[RITONAVIR 100 MG]; 2X/DAY

REACTIONS (9)
  - Nausea [Unknown]
  - Decreased appetite [Unknown]
  - Faeces discoloured [Unknown]
  - Hyperhidrosis [Unknown]
  - Asthenia [Unknown]
  - Fatigue [Unknown]
  - Influenza like illness [Unknown]
  - Feeling abnormal [Unknown]
  - Malaise [Unknown]
